FAERS Safety Report 9267982 (Version 1)
Quarter: 2013Q2

REPORT INFORMATION
  Report Type: Report from Study
  Country: US (occurrence: US)
  Receive Date: 20130502
  Receipt Date: 20130502
  Transmission Date: 20140414
  Serious: Yes (Other)
  Sender: FDA-Public Use
  Company Number: US-ALEXION-A201201434

PATIENT
  Sex: Female

DRUGS (8)
  1. SOLIRIS [Suspect]
     Indication: HAEMOLYTIC URAEMIC SYNDROME
     Dosage: UNK
     Route: 042
  2. METOPROLOL [Concomitant]
  3. NORVASC [Concomitant]
     Dosage: UNK
  4. ISRADIPINE [Concomitant]
     Dosage: UNK
  5. AMOXICILLIN [Concomitant]
     Dosage: UNK
  6. VITAMIN D [Concomitant]
     Dosage: UNK
  7. ZANTAC [Concomitant]
     Dosage: UNK
  8. TUMS [Concomitant]
     Dosage: UNK

REACTIONS (3)
  - Haemodialysis [Not Recovered/Not Resolved]
  - Visual acuity reduced [Unknown]
  - Fatigue [Not Recovered/Not Resolved]
